FAERS Safety Report 5671609-2 (Version None)
Quarter: 2008Q1

REPORT INFORMATION
  Report Type: 
  Country: None (occurrence: None)
  Receive Date: 20080313
  Receipt Date: 20080307
  Transmission Date: 20080703
  Serious: Yes (Other)
  Sender: FDA-Public Use
  Company Number: 2008AP000605

PATIENT
  Age: 50 Year
  Sex: Female

DRUGS (14)
  1. PAROXETINE HCL [Suspect]
     Dosage: SEE IMAGE
     Dates: start: 19941201, end: 19950301
  2. PAROXETINE HCL [Suspect]
     Dosage: SEE IMAGE
     Dates: end: 19951101
  3. PAROXETINE HCL [Suspect]
     Dosage: SEE IMAGE
     Dates: end: 20000501
  4. PAROXETINE HCL [Suspect]
     Dosage: SEE IMAGE
     Dates: start: 19940915
  5. PAROXETINE HCL [Suspect]
     Dosage: SEE IMAGE
     Dates: start: 19960228
  6. PAROXETINE HCL [Suspect]
     Dosage: SEE IMAGE
     Dates: start: 20030101
  7. PAROXETINE HCL [Suspect]
     Dosage: SEE IMAGE
     Dates: start: 20030301
  8. PAROXETINE HCL [Suspect]
     Dosage: SEE IMAGE
     Dates: start: 20030701
  9. PAROXETINE HCL [Suspect]
     Dosage: SEE IMAGE
     Dates: start: 20050901
  10. DIAZEPAM [Concomitant]
  11. VENLAFAXINE HYDROCHLORIDE (VENLAFAXINE) [Concomitant]
  12. ENDOCRINE THERAPY (ENDOCRINE THERAPY) [Concomitant]
  13. DOSULEPIN HYDROCHLORIDE (DOSULEPIN HYDROCHLORIDE) [Concomitant]
  14. THIORIDAZINE HCL [Concomitant]

REACTIONS (20)
  - AGGRESSION [None]
  - AGITATION [None]
  - DEPRESSION [None]
  - DIZZINESS [None]
  - DRUG DEPENDENCE [None]
  - DRUG WITHDRAWAL SYNDROME [None]
  - FLUSHING [None]
  - HYPERHIDROSIS [None]
  - INJURY [None]
  - LIBIDO DECREASED [None]
  - MALAISE [None]
  - MENOPAUSE [None]
  - MIGRAINE [None]
  - PANIC ATTACK [None]
  - PANIC DISORDER [None]
  - PRURITUS GENERALISED [None]
  - ROAD TRAFFIC ACCIDENT [None]
  - STRESS [None]
  - TINNITUS [None]
  - VISUAL DISTURBANCE [None]
